FAERS Safety Report 7475464-X (Version None)
Quarter: 2011Q2

REPORT INFORMATION
  Report Type: 
  Country: None (occurrence: None)
  Receive Date: 20110512
  Receipt Date: 20110428
  Transmission Date: 20111010
  Serious: Yes (Other)
  Sender: FDA-Public Use
  Company Number: PHHY2011DE37257

PATIENT
  Age: 33 Year
  Sex: Female

DRUGS (1)
  1. VOLTAREN [Suspect]
     Indication: MYALGIA
     Dosage: UNK, PRN
     Route: 048
     Dates: start: 20070101

REACTIONS (3)
  - THROMBOSIS [None]
  - SKIN ULCER [None]
  - CAPILLARITIS [None]
